FAERS Safety Report 9154898 (Version 2)
Quarter: 2013Q1

REPORT INFORMATION
  Report Type: Spontaneous
  Country: US (occurrence: None)
  Receive Date: 20130205
  Receipt Date: 20130326
  Transmission Date: 20140127
  Serious: Yes (Hospitalization, Disabling, Other)
  Sender: FDA-Public Use
  Company Number: 2013P1001554

PATIENT
  Age: 53 Year
  Sex: Male

DRUGS (3)
  1. INFUMORPH [Suspect]
  2. CLONIDINE [Suspect]
  3. MORPHINE [Suspect]
     Dosage: 0 4994 MG, QD     1/22/2013?0.5994 MG, QD      1/23/2013     PRESENT.

REACTIONS (11)
  - Malaise [None]
  - Pain [None]
  - Nausea [None]
  - Vomiting [None]
  - Dizziness [None]
  - Pallor [None]
  - Underdose [None]
  - Drug withdrawal syndrome [None]
  - Hypertension [None]
  - Device malfunction [None]
  - Off label use [None]
